FAERS Safety Report 24565031 (Version 3)
Quarter: 2024Q4

REPORT INFORMATION
  Report Type: Spontaneous
  Country: IT (occurrence: IT)
  Receive Date: 20241030
  Receipt Date: 20241112
  Transmission Date: 20250115
  Serious: Yes (Other)
  Sender: PFIZER
  Company Number: IT-MLMSERVICE-20241017-PI230679-00128-1

PATIENT
  Age: 43 Year
  Sex: Male
  Weight: 180 kg

DRUGS (4)
  1. DOXORUBICIN HYDROCHLORIDE [Suspect]
     Active Substance: DOXORUBICIN HYDROCHLORIDE
     Indication: Hodgkin^s disease nodular sclerosis stage IV
     Dosage: SIX CYCLES, ADMINISTERED EVERY 2 WEEKS
     Dates: start: 202302, end: 202308
  2. BRENTUXIMAB VEDOTIN [Suspect]
     Active Substance: BRENTUXIMAB VEDOTIN
     Indication: Hodgkin^s disease nodular sclerosis stage IV
     Dosage: SIX CYCLES, ADMINISTERED EVERY 2 WEEKS
     Dates: start: 202302, end: 202308
  3. VINBLASTINE [Suspect]
     Active Substance: VINBLASTINE
     Indication: Hodgkin^s disease nodular sclerosis stage IV
     Dosage: SIX CYCLES, ADMINISTERED EVERY 2 WEEKS
     Dates: start: 202302, end: 202308
  4. DACARBAZINE [Suspect]
     Active Substance: DACARBAZINE
     Indication: Hodgkin^s disease nodular sclerosis stage IV
     Dosage: SIX CYCLES, ADMINISTERED EVERY 2 WEEKS
     Dates: start: 202302, end: 202308

REACTIONS (1)
  - Visceral leishmaniasis [Recovered/Resolved]

NARRATIVE: CASE EVENT DATE: 20230901
